FAERS Safety Report 8019878-8 (Version None)
Quarter: 2012Q1

REPORT INFORMATION
  Report Type: 
  Country: None (occurrence: None)
  Receive Date: 20120103
  Receipt Date: 20111228
  Transmission Date: 20120608
  Serious: Yes (Other)
  Sender: FDA-Public Use
  Company Number: BR-ABBOTT-11P-020-0883570-00

PATIENT
  Sex: Female
  Weight: 64 kg

DRUGS (14)
  1. CINNARIZINE [Concomitant]
     Indication: LABYRINTHITIS
  2. HYDROCHLOROTHIAZIDE [Concomitant]
     Indication: TACHYCARDIA
     Route: 048
  3. OMEPRAZOLE [Concomitant]
     Indication: GASTRIC DISORDER
  4. HYDROCHLOROTHIAZIDE [Concomitant]
     Indication: BLOOD PRESSURE
  5. ENALAPRIL MALEATE [Concomitant]
     Indication: BLOOD PRESSURE
  6. FLUTICASONE PROPIONATE/SALMETEROL [Concomitant]
     Indication: ASTHMA
  7. AMITRIPTYLINE HCL [Concomitant]
     Indication: CEREBROVASCULAR ACCIDENT
  8. HUMIRA [Suspect]
     Indication: RHEUMATOID ARTHRITIS
     Dates: start: 20111128
  9. ARAVA [Suspect]
     Indication: ARTHRITIS
     Dates: end: 20111128
  10. ACETYLSALICYLIC ACID SRT [Concomitant]
     Indication: CARDIAC DISORDER
  11. INSULIN [Concomitant]
     Indication: DIABETES MELLITUS
     Dosage: 4 TIMES A DAY
     Route: 050
  12. NIMESILIDE [Concomitant]
     Indication: PAIN
  13. METHOTREXATE [Concomitant]
     Indication: ARTHRITIS
     Dosage: 8 TABLETS EVERY 7 DAYS
     Route: 048
  14. DIGOXIN [Concomitant]
     Indication: CARDIAC DISORDER

REACTIONS (19)
  - URTICARIA [None]
  - PERIANAL ERYTHEMA [None]
  - DYSPNOEA [None]
  - INJECTION SITE DISCOLOURATION [None]
  - HAEMATOCHEZIA [None]
  - PHOTOPSIA [None]
  - WEIGHT DECREASED [None]
  - VULVOVAGINAL ERYTHEMA [None]
  - TACHYCARDIA [None]
  - INJECTION SITE PAIN [None]
  - PYREXIA [None]
  - NAUSEA [None]
  - VULVOVAGINAL SWELLING [None]
  - VULVOVAGINAL PRURITUS [None]
  - RECTAL DISCHARGE [None]
  - WOUND [None]
  - DIARRHOEA [None]
  - STOMATITIS [None]
  - VOMITING [None]
